FAERS Safety Report 6464041-5 (Version None)
Quarter: 2009Q4

REPORT INFORMATION
  Report Type: 
  Country: None (occurrence: None)
  Receive Date: 20091123
  Receipt Date: 20091109
  Transmission Date: 20100525
  Serious: Yes (Death, Hospitalization)
  Sender: FDA-Public Use
  Company Number: 2009AL007207

PATIENT
  Age: 6 Year
  Sex: Female

DRUGS (1)
  1. SULFATRIM AND SULFATRIM PEDIATRIC SUSPENSION (SULFAMETHOXAZOLE/TRIMETH [Suspect]
     Indication: MALARIA

REACTIONS (6)
  - DIARRHOEA HAEMORRHAGIC [None]
  - HAEMATEMESIS [None]
  - KLEBSIELLA SEPSIS [None]
  - MULTIPLE-DRUG RESISTANCE [None]
  - RESPIRATORY DISTRESS [None]
  - TOXIC EPIDERMAL NECROLYSIS [None]
